FAERS Safety Report 12724242 (Version 1)
Quarter: 2016Q3

REPORT INFORMATION
  Report Type: Spontaneous
  Country: US (occurrence: US)
  Receive Date: 20160907
  Receipt Date: 20160907
  Transmission Date: 20161109
  Serious: Yes (Disabling)
  Sender: FDA-Public Use
  Company Number: None

PATIENT
  Age: 54 Year
  Sex: Male
  Weight: 60.75 kg

DRUGS (1)
  1. DYMISTA [Suspect]
     Active Substance: AZELASTINE HYDROCHLORIDE\FLUTICASONE PROPIONATE
     Indication: MULTIPLE ALLERGIES
     Dosage: OTHER STRENGTH:MCG;OTHER DOSE:G;OTHER FREQUENCY:;OTHER ROUTE:SPRAYED INTO NOSE
     Dates: start: 20160826, end: 20160901

REACTIONS (5)
  - Wrong technique in product usage process [None]
  - Anosmia [None]
  - Depressed mood [None]
  - Oropharyngeal pain [None]
  - Drug effect decreased [None]

NARRATIVE: CASE EVENT DATE: 20160901
